FAERS Safety Report 9686794 (Version 1)
Quarter: 2013Q4

REPORT INFORMATION
  Report Type: Report from Study
  Country: BR (occurrence: BR)
  Receive Date: 20131113
  Receipt Date: 20131113
  Transmission Date: 20140711
  Serious: Yes (Hospitalization, Other)
  Sender: FDA-Public Use
  Company Number: PHHY2013BR128488

PATIENT
  Age: 54 Year
  Sex: Female
  Weight: 57 kg

DRUGS (2)
  1. GILENYA [Suspect]
     Indication: MULTIPLE SCLEROSIS
     Dosage: 1 DF, DAILY
     Route: 048
     Dates: start: 201302
  2. GILENYA [Suspect]
     Route: 048

REACTIONS (11)
  - Cerebrovascular accident [Unknown]
  - Depression [Unknown]
  - Heart rate decreased [Recovering/Resolving]
  - Aphasia [Unknown]
  - Tinnitus [Not Recovered/Not Resolved]
  - Anxiety [Not Recovered/Not Resolved]
  - Weight decreased [Not Recovered/Not Resolved]
  - Chills [Unknown]
  - Dyspnoea [Unknown]
  - Vision blurred [Unknown]
  - Headache [Not Recovered/Not Resolved]
